FAERS Safety Report 20515692 (Version 1)
Quarter: 2022Q1

REPORT INFORMATION
  Report Type: Spontaneous
  Country: FR (occurrence: FR)
  Receive Date: 20220224
  Receipt Date: 20220224
  Transmission Date: 20220424
  Serious: Yes (Other)
  Sender: FDA-Public Use
  Company Number: FR-NOVARTISPH-NVSC2021FR214712

PATIENT
  Age: 62 Year
  Sex: Female

DRUGS (3)
  1. GILENYA [Suspect]
     Active Substance: FINGOLIMOD HYDROCHLORIDE
     Indication: Multiple sclerosis
     Dosage: 0.5 MG, QD
     Route: 048
     Dates: start: 20111114, end: 20210730
  2. CHOLECALCIFEROL [Concomitant]
     Active Substance: CHOLECALCIFEROL
     Indication: Vitamin D deficiency
     Dosage: UNK, AMPOULE
     Route: 048
  3. REBIF [Concomitant]
     Active Substance: INTERFERON BETA-1A
     Indication: Product used for unknown indication
     Dosage: 44 UG
     Route: 065
     Dates: start: 200510, end: 201111

REACTIONS (3)
  - Progressive multifocal leukoencephalopathy [Recovering/Resolving]
  - Immune reconstitution inflammatory syndrome [Recovering/Resolving]
  - Central nervous system lesion [Unknown]

NARRATIVE: CASE EVENT DATE: 20210622
